FAERS Safety Report 8168445-4 (Version None)
Quarter: 2012Q1

REPORT INFORMATION
  Report Type: 
  Country: None (occurrence: None)
  Receive Date: 20120227
  Receipt Date: 20120104
  Transmission Date: 20120608
  Serious: Yes (Hospitalization)
  Sender: FDA-Public Use
  Company Number: US-NOVOPROD-338900

PATIENT
  Age: 67 Year
  Sex: Male
  Weight: 90.703 kg

DRUGS (9)
  1. CAPTOPRIL [Concomitant]
     Indication: BLOOD PRESSURE
     Dosage: 12 MG EVERY 8 HOURS
     Route: 065
  2. NOVOLOG [Suspect]
     Indication: TYPE 2 DIABETES MELLITUS
     Dosage: 17 UNITS IN EVENING
     Route: 058
     Dates: start: 20110401
  3. POTASSIUM CHLORIDE [Concomitant]
     Indication: PRODUCT USED FOR UNKNOWN INDICATION
     Dosage: UNK
     Route: 065
  4. ALLOPURINOL [Concomitant]
     Indication: PRODUCT USED FOR UNKNOWN INDICATION
     Dosage: UNK
     Route: 065
  5. NOVOLOG [Suspect]
     Indication: TYPE 2 DIABETES MELLITUS
     Dosage: 19U MORNING, 19U LUNCH AND 17 UNITS PM, SLIDING SCALE
     Route: 058
     Dates: start: 20110401
  6. LEVEMIR [Suspect]
     Indication: TYPE 2 DIABETES MELLITUS
     Dosage: 42U MORNING AND 60U EVENING
     Route: 058
     Dates: start: 20110401
  7. TEKTURNA [Concomitant]
     Indication: BLOOD PRESSURE
     Dosage: UNK
     Route: 065
  8. SIMVASTATIN [Concomitant]
     Indication: BLOOD CHOLESTEROL
     Dosage: UNK
     Route: 048
  9. LASIX [Concomitant]
     Indication: PRODUCT USED FOR UNKNOWN INDICATION
     Dosage: UNK
     Route: 065

REACTIONS (1)
  - PLEURAL EFFUSION [None]
